FAERS Safety Report 25238888 (Version 4)
Quarter: 2025Q2

REPORT INFORMATION
  Report Type: Spontaneous
  Country: SI (occurrence: SI)
  Receive Date: 20250425
  Receipt Date: 20250625
  Transmission Date: 20250717
  Serious: Yes (Hospitalization, Other)
  Sender: SANDOZ
  Company Number: SI-BIOCON BIOLOGICS LIMITED-BBL2024009570

PATIENT
  Age: 34 Year
  Sex: Female
  Weight: 93 kg

DRUGS (6)
  1. ADALIMUMAB [Suspect]
     Active Substance: ADALIMUMAB
     Indication: Hidradenitis
     Dosage: 40 MG, WEEKLY
     Route: 065
  2. CLINDAMYCIN [Suspect]
     Active Substance: CLINDAMYCIN
     Indication: Hidradenitis
     Route: 065
  3. ETONOGESTREL/ETHINYL ESTRADIOL [Suspect]
     Active Substance: ETHINYL ESTRADIOL\ETONOGESTREL
     Indication: Hidradenitis
     Route: 067
  4. ETONOGESTREL/ETHINYL ESTRADIOL [Suspect]
     Active Substance: ETHINYL ESTRADIOL\ETONOGESTREL
     Indication: Contraception
  5. DOXYCYCLINE [Concomitant]
     Active Substance: DOXYCYCLINE
     Indication: Hidradenitis
     Route: 065
  6. ETONOGESTREL/ETHINYL ESTRADIOL [Concomitant]
     Active Substance: ETHINYL ESTRADIOL\ETONOGESTREL
     Indication: Contraception
     Route: 065

REACTIONS (6)
  - Drug interaction [Recovered/Resolved]
  - Pancreatitis [Recovering/Resolving]
  - Hypertriglyceridaemia [Recovered/Resolved]
  - Atelectasis [Unknown]
  - Hepatic steatosis [Recovering/Resolving]
  - Drug ineffective [Unknown]
